FAERS Safety Report 17974348 (Version 1)
Quarter: 2020Q3

REPORT INFORMATION
  Report Type: Spontaneous
  Country: US (occurrence: US)
  Receive Date: 20200702
  Receipt Date: 20200702
  Transmission Date: 20201103
  Serious: Yes (Death)
  Sender: FDA-Public Use
  Company Number: None

PATIENT
  Age: 29 Year
  Sex: Female

DRUGS (4)
  1. PREDNISONE. [Concomitant]
     Active Substance: PREDNISONE
     Dates: start: 20190411, end: 20200531
  2. TACROLIMUS. [Concomitant]
     Active Substance: TACROLIMUS
     Dates: start: 20191101, end: 20200531
  3. MYCOPHENOLATE CAPSULES [Suspect]
     Active Substance: MYCOPHENOLIC ACID
     Indication: LIVER TRANSPLANT
     Route: 048
  4. CRESEMBA [Concomitant]
     Active Substance: ISAVUCONAZONIUM SULFATE
     Dates: start: 20200131, end: 20200531

REACTIONS (2)
  - Cerebral haemorrhage [None]
  - Cerebral infarction [None]

NARRATIVE: CASE EVENT DATE: 20200629
